FAERS Safety Report 14746809 (Version 1)
Quarter: 2018Q2

REPORT INFORMATION
  Report Type: Spontaneous
  Country: IT (occurrence: IT)
  Receive Date: 20180411
  Receipt Date: 20180411
  Transmission Date: 20180711
  Serious: Yes (Hospitalization, Other)
  Sender: FDA-Public Use
  Company Number: IT-MYLANLABS-2018M1022375

PATIENT
  Age: 49 Year
  Sex: Female

DRUGS (5)
  1. RISPERDAL [Suspect]
     Active Substance: RISPERIDONE
     Indication: PRODUCT USED FOR UNKNOWN INDICATION
     Dosage: 7 MG, TOTAL
     Route: 048
     Dates: start: 20170505, end: 20170505
  2. METFORMIN [Concomitant]
     Active Substance: METFORMIN HYDROCHLORIDE
     Indication: TYPE 2 DIABETES MELLITUS
     Dosage: 2000 MG, UNK
     Route: 048
  3. EN 0,5 MG COMPRESSE [Concomitant]
     Indication: PRODUCT USED FOR UNKNOWN INDICATION
     Dosage: 1 MG, UNK
     Route: 048
  4. SERTRALINA MYLAN GENERICS 50 MG COMPRESSE RIVESTITE CON FILM [Suspect]
     Active Substance: SERTRALINE HYDROCHLORIDE
     Indication: PRODUCT USED FOR UNKNOWN INDICATION
     Dosage: 200 MG, TOTAL
     Route: 048
     Dates: start: 20170505, end: 20170505
  5. DEPAKIN CHRONO 500 MG COMPRESSE A RILASCIO PROLUNGATO [Suspect]
     Active Substance: VALPROIC ACID
     Indication: PRODUCT USED FOR UNKNOWN INDICATION
     Dosage: 1500 MG, TOTAL
     Route: 048
     Dates: start: 20170505, end: 20170505

REACTIONS (5)
  - Suicide attempt [Unknown]
  - Sopor [Recovered/Resolved]
  - Drug abuse [Recovered/Resolved]
  - Sluggishness [Recovered/Resolved]
  - Headache [Recovered/Resolved]

NARRATIVE: CASE EVENT DATE: 20170505
